FAERS Safety Report 15749292 (Version 1)
Quarter: 2018Q4

REPORT INFORMATION
  Report Type: Spontaneous
  Country: US (occurrence: US)
  Receive Date: 20181221
  Receipt Date: 20181221
  Transmission Date: 20190205
  Serious: No
  Sender: FDA-Public Use
  Company Number: US-PFIZER INC-2018524671

PATIENT
  Age: 56 Year
  Sex: Male

DRUGS (1)
  1. GENOTROPIN [Suspect]
     Active Substance: SOMATROPIN
     Dosage: 0.6 MG, DAILY
     Dates: start: 20181029

REACTIONS (9)
  - Blood follicle stimulating hormone increased [Unknown]
  - Fatigue [Unknown]
  - Human epidermal growth factor receptor decreased [Unknown]
  - Decreased appetite [Unknown]
  - Haematocrit increased [Unknown]
  - Weight increased [Unknown]
  - Haemoglobin increased [Unknown]
  - High density lipoprotein decreased [Unknown]
  - Blood creatinine increased [Unknown]

NARRATIVE: CASE EVENT DATE: 20181203
